FAERS Safety Report 21678760 (Version 1)
Quarter: 2022Q4

REPORT INFORMATION
  Report Type: Spontaneous
  Country: IT (occurrence: IT)
  Receive Date: 20221204
  Receipt Date: 20221204
  Transmission Date: 20230112
  Serious: Yes (Other)
  Sender: FDA-Public Use
  Company Number: IT-AMGEN-ITASP2022205961

PATIENT
  Age: 48 Year
  Sex: Male

DRUGS (5)
  1. XGEVA [Suspect]
     Active Substance: DENOSUMAB
     Indication: Prophylaxis
     Dosage: 120 MILLIGRAM, QMO
     Route: 058
     Dates: start: 201712
  2. XGEVA [Suspect]
     Active Substance: DENOSUMAB
     Indication: Metastases to bone
  3. GOSERELIN [Concomitant]
     Active Substance: GOSERELIN
     Indication: Metastases to bone
     Dosage: 3.6 MILLIGRAM, QMO
     Route: 058
     Dates: start: 201712
  4. RIBOCICLIB [Concomitant]
     Active Substance: RIBOCICLIB
     Indication: Metastases to central nervous system
     Dosage: 600 MILLIGRAM, QD ((3 WEEKS ON/1 WEEK OFF)
     Route: 065
     Dates: start: 201711
  5. LETROZOLE [Concomitant]
     Active Substance: LETROZOLE
     Indication: Metastases to central nervous system
     Dosage: 2.5 MILLIGRAM, QD
     Route: 065
     Dates: start: 201711

REACTIONS (2)
  - Central nervous system necrosis [Unknown]
  - Breast cancer metastatic [Unknown]

NARRATIVE: CASE EVENT DATE: 20180901
